FAERS Safety Report 22243183 (Version 2)
Quarter: 2023Q2

REPORT INFORMATION
  Report Type: Spontaneous
  Country: ES (occurrence: ES)
  Receive Date: 20230424
  Receipt Date: 20230616
  Transmission Date: 20230722
  Serious: Yes (Hospitalization)
  Sender: FDA-Public Use
  Company Number: ES-AEMPS-1325827

PATIENT
  Age: 60 Year
  Sex: Male
  Weight: 61.5 kg

DRUGS (8)
  1. LENALIDOMIDE [Suspect]
     Active Substance: LENALIDOMIDE
     Indication: Plasma cell myeloma
     Dosage: 25 MILLIGRAM, QD
     Route: 048
     Dates: start: 20230116, end: 20230123
  2. BORTEZOMIB [Suspect]
     Active Substance: BORTEZOMIB
     Indication: Plasma cell myeloma
     Dosage: 1 3 MG/M2 SYRINGE IN WEEKLY CYCLES
     Route: 040
     Dates: start: 20230116, end: 20230123
  3. ACYCLOVIR [Suspect]
     Active Substance: ACYCLOVIR
     Indication: Prophylaxis
     Dosage: 800 MILLIGRAM, QD, 1-0-0
     Route: 048
     Dates: start: 20230103, end: 20230126
  4. SULFAMETHOXAZOLE\TRIMETHOPRIM [Suspect]
     Active Substance: SULFAMETHOXAZOLE\TRIMETHOPRIM
     Indication: Prophylaxis
     Dosage: 2 DOSAGE FORM, WEEKLY
     Route: 048
     Dates: start: 20230116, end: 20230123
  5. ASPIRIN [Concomitant]
     Active Substance: ASPIRIN
     Indication: Product used for unknown indication
     Dosage: UNK
     Route: 065
  6. LANTUS [Concomitant]
     Active Substance: INSULIN GLARGINE
     Indication: Diabetes mellitus
     Dosage: UNK
     Route: 065
  7. VOKANAMET 50 MG/1000 MG COMPRIMIDOS RECUBIERTOS CON PELICULA [Concomitant]
     Indication: Diabetes mellitus
     Dosage: UNK
     Route: 065
  8. HYDROCHLOROTHIAZIDE\OLMESARTAN MEDOXOMIL [Concomitant]
     Active Substance: HYDROCHLOROTHIAZIDE\OLMESARTAN MEDOXOMIL
     Indication: Hypertension
     Dosage: UNK
     Route: 065

REACTIONS (1)
  - Acute kidney injury [Recovered/Resolved]

NARRATIVE: CASE EVENT DATE: 20230125
